FAERS Safety Report 7948721-8 (Version None)
Quarter: 2011Q4

REPORT INFORMATION
  Report Type: 
  Country: None (occurrence: None)
  Receive Date: 20111130
  Receipt Date: 20111121
  Transmission Date: 20120403
  Serious: Yes (Hospitalization)
  Sender: FDA-Public Use
  Company Number: US-JNJFOC-20111109082

PATIENT
  Sex: Female
  Weight: 72.58 kg

DRUGS (20)
  1. DURAGESIC-100 [Suspect]
     Dosage: 100 UG/HR AND 50 UG/HR
     Route: 062
     Dates: end: 20070101
  2. DURAGESIC-100 [Suspect]
     Indication: NERVE ROOT INJURY
     Dosage: 100 UG/HR AND 75 UG/HR
     Route: 062
     Dates: end: 20100101
  3. DURAGESIC-100 [Suspect]
     Dosage: 100 UG/HR AND 50 UG/HR
     Route: 062
     Dates: start: 20110101
  4. CELEBREX [Concomitant]
     Indication: INFLAMMATION
     Route: 048
     Dates: start: 20010101
  5. LOTEMAX [Concomitant]
     Indication: INFLAMMATION
     Dosage: ONE DROP IN EACH EYE AS NEEDED
     Route: 031
     Dates: start: 20010101
  6. FLONASE [Concomitant]
     Indication: HYPERSENSITIVITY
     Route: 055
     Dates: start: 20010101
  7. DURAGESIC-100 [Suspect]
     Route: 062
     Dates: start: 20010101, end: 20040101
  8. FENTANYL-100 [Suspect]
     Indication: NERVE ROOT INJURY
     Dosage: 100 UG/HR AND 50 UG/HR
     Route: 062
     Dates: start: 20110201, end: 20110101
  9. TRICOR [Concomitant]
     Indication: BLOOD CHOLESTEROL
     Route: 048
     Dates: start: 20010101
  10. CROMOLYN SODIUM [Concomitant]
     Indication: RASH
     Route: 061
     Dates: start: 20010101
  11. FLEXERIL [Concomitant]
     Indication: MUSCLE RELAXANT THERAPY
     Dosage: AS NEEDED
     Route: 048
     Dates: start: 20010101
  12. DURAGESIC-100 [Suspect]
     Dosage: 100 UG/HR + 25 UG/HR
     Route: 062
     Dates: start: 20040101
  13. PREMARIN [Concomitant]
     Indication: HOT FLUSH
     Route: 048
     Dates: start: 20010101
  14. PERCOCET [Concomitant]
     Indication: BREAKTHROUGH PAIN
     Dosage: 7.5/500 MG, AS NEEDED
     Route: 048
     Dates: start: 20010101
  15. LIPITOR [Concomitant]
     Indication: BLOOD CHOLESTEROL
     Route: 048
     Dates: start: 20010101
  16. NEXIUM [Concomitant]
     Indication: GASTROOESOPHAGEAL REFLUX DISEASE
     Route: 048
     Dates: start: 20010101
  17. RESTASIS [Concomitant]
     Indication: MACULAR DEGENERATION
     Dosage: ONE DROP IN EACH EYE THREE TIMES A DAY
     Route: 031
     Dates: start: 20010101
  18. BACTROBAN [Concomitant]
     Indication: ANTIBIOTIC THERAPY
     Dosage: AS NEEDED
     Route: 061
     Dates: start: 20010101
  19. DURAGESIC-100 [Suspect]
     Dosage: 100 UG/HR AND 50 UG/HR
     Route: 062
     Dates: start: 20100101, end: 20110201
  20. CROMOLYN SODIUM [Concomitant]
     Indication: SPINAL CORD INJURY
     Route: 061
     Dates: start: 20010101

REACTIONS (4)
  - WEIGHT FLUCTUATION [None]
  - NERVE ROOT INJURY [None]
  - PRODUCT QUALITY ISSUE [None]
  - HYPERSENSITIVITY [None]
